FAERS Safety Report 6670820-1 (Version None)
Quarter: 2010Q2

REPORT INFORMATION
  Report Type: 
  Country: None (occurrence: None)
  Receive Date: 20100407
  Receipt Date: 20100331
  Transmission Date: 20101027
  Serious: Yes (Life-Threatening, Hospitalization, Other)
  Sender: FDA-Public Use
  Company Number: PHHY2009BR54588

PATIENT
  Sex: Female
  Weight: 74 kg

DRUGS (2)
  1. DIOVAN [Suspect]
     Indication: HYPERTENSION
     Dosage: 1 DF, QD
     Route: 048
     Dates: start: 20091201
  2. INSULIN [Concomitant]
     Indication: DIABETES MELLITUS

REACTIONS (16)
  - BLINDNESS [None]
  - BLOOD PRESSURE INADEQUATELY CONTROLLED [None]
  - BLOOD PRESSURE INCREASED [None]
  - DIZZINESS [None]
  - DRUG INEFFECTIVE [None]
  - FEELING ABNORMAL [None]
  - GENERALISED OEDEMA [None]
  - HEADACHE [None]
  - INSOMNIA [None]
  - MOUTH INJURY [None]
  - NAUSEA [None]
  - OEDEMA PERIPHERAL [None]
  - ORAL MUCOSAL EXFOLIATION [None]
  - PULMONARY OEDEMA [None]
  - REBOUND EFFECT [None]
  - SYNCOPE [None]
